FAERS Safety Report 6534449-8 (Version None)
Quarter: 2010Q1

REPORT INFORMATION
  Report Type: 
  Country: None (occurrence: None)
  Receive Date: 20100112
  Receipt Date: 20100105
  Transmission Date: 20100710
  Serious: Yes (Life-Threatening, Hospitalization)
  Sender: FDA-Public Use
  Company Number: JP-SANOFI-AVENTIS-2010SA000398

PATIENT
  Age: 55 Year
  Sex: Male

DRUGS (10)
  1. ELPLAT [Suspect]
     Indication: RECTAL CANCER METASTATIC
     Route: 041
     Dates: start: 20090421, end: 20090421
  2. ELPLAT [Suspect]
     Route: 041
     Dates: start: 20090709, end: 20090709
  3. AVASTIN [Suspect]
     Indication: RECTAL CANCER METASTATIC
     Route: 041
     Dates: start: 20090421, end: 20090421
  4. AVASTIN [Suspect]
     Route: 041
     Dates: start: 20090625, end: 20090625
  5. CALCIUM LEVOFOLINATE [Suspect]
     Indication: RECTAL CANCER METASTATIC
     Route: 041
     Dates: start: 20090421, end: 20090421
  6. CALCIUM LEVOFOLINATE [Suspect]
     Route: 041
     Dates: start: 20090709, end: 20090709
  7. FLUOROURACIL [Suspect]
     Indication: RECTAL CANCER METASTATIC
     Route: 040
     Dates: start: 20090421, end: 20090421
  8. FLUOROURACIL [Suspect]
     Route: 041
     Dates: start: 20090421
  9. FLUOROURACIL [Suspect]
     Route: 040
     Dates: start: 20090709, end: 20090709
  10. FLUOROURACIL [Suspect]
     Route: 041
     Dates: start: 20090709

REACTIONS (6)
  - ARTERIAL HAEMORRHAGE [None]
  - CARDIAC ARREST [None]
  - DECREASED APPETITE [None]
  - DIARRHOEA [None]
  - DUODENAL ULCER PERFORATION [None]
  - SHOCK HAEMORRHAGIC [None]
